FAERS Safety Report 9210854 (Version 1)
Quarter: 2013Q2

REPORT INFORMATION
  Report Type: Spontaneous
  Country: US (occurrence: US)
  Receive Date: 20130404
  Receipt Date: 20130404
  Transmission Date: 20140414
  Serious: Yes (Disabling, Other)
  Sender: FDA-Public Use
  Company Number: US-FRI-1000043890

PATIENT
  Sex: Male
  Weight: 77 kg

DRUGS (9)
  1. LEXAPRO [Suspect]
  2. EFFEXOR [Suspect]
  3. WELLBUTRIN [Suspect]
     Dosage: 600 MG
     Dates: end: 201105
  4. CONCERTA [Suspect]
  5. ATIVAN [Suspect]
  6. DEPAKOTE [Suspect]
  7. TRILEPTAL [Suspect]
  8. AMBIEN [Suspect]
  9. LITHIUM [Suspect]

REACTIONS (10)
  - Atrial fibrillation [Unknown]
  - Myocardial infarction [Unknown]
  - Nasopharyngitis [Unknown]
  - Self injurious behaviour [Unknown]
  - Unevaluable event [Unknown]
  - Unevaluable event [Unknown]
  - Unevaluable event [Unknown]
  - Unevaluable event [Unknown]
  - Unevaluable event [Unknown]
  - Panic attack [Unknown]
